FAERS Safety Report 4428456-9 (Version None)
Quarter: 2004Q3

REPORT INFORMATION
  Report Type: 
  Country: None (occurrence: None)
  Receive Date: 20040813
  Receipt Date: 20040729
  Transmission Date: 20050211
  Serious: Yes (Hospitalization)
  Sender: FDA-Public Use
  Company Number: 2004AP04030

PATIENT
  Age: 6 Year

DRUGS (2)
  1. RHINOCORT [Suspect]
  2. EPIPEN [Concomitant]

REACTIONS (4)
  - COUGH [None]
  - HOARSENESS [None]
  - HYPERSENSITIVITY [None]
  - SENSATION OF FOREIGN BODY [None]
